FAERS Safety Report 9828661 (Version 1)
Quarter: 2013Q4

REPORT INFORMATION
  Report Type: Spontaneous
  Country: US (occurrence: None)
  Receive Date: 20131120
  Receipt Date: 20131120
  Transmission Date: 20140711
  Serious: No
  Sender: FDA-Public Use
  Company Number: 1000048516

PATIENT
  Age: 57 Year
  Sex: Male

DRUGS (5)
  1. VIIBRYD (VILAZODONE HYDROCHLORIDE) (10 MILLIGRAM, TABLETS) [Suspect]
     Indication: DEPRESSION
     Route: 048
     Dates: start: 2013, end: 2013
  2. VIIBRYD (VILAZODONE HYDROCHLORIDE) (40 MILLIGRAM, TABLETS) [Suspect]
     Indication: DEPRESSION
     Route: 048
     Dates: start: 2013, end: 2013
  3. CYMBALTA (DULOXETINE HYDROCHLORIDE) [Suspect]
     Indication: DEPRESSION
     Dates: end: 201307
  4. MIRTAZAPINE (MIRTAZAPINE) (MIRTAZAPINE) [Concomitant]
  5. DIOVAN (VALSARTAN) (VALSARTAN) [Concomitant]

REACTIONS (3)
  - Insomnia [None]
  - Nervousness [None]
  - Diarrhoea [None]
